FAERS Safety Report 14963450 (Version 1)
Quarter: 2018Q2

REPORT INFORMATION
  Report Type: Spontaneous
  Country: CZ (occurrence: CZ)
  Receive Date: 20180601
  Receipt Date: 20180601
  Transmission Date: 20180711
  Serious: Yes (Other)
  Sender: FDA-Public Use
  Company Number: PHHY2018CZ011723

PATIENT
  Age: 51 Year
  Sex: Female

DRUGS (5)
  1. PARALEN [Concomitant]
     Active Substance: ACETAMINOPHEN
     Indication: PRODUCT USED FOR UNKNOWN INDICATION
     Dosage: UNK
     Route: 065
  2. MAXI-KALZ [Concomitant]
     Indication: PRODUCT USED FOR UNKNOWN INDICATION
     Dosage: 1000 MG, BID (1-0-1)
     Route: 065
  3. DOXYHEXAL [Suspect]
     Active Substance: DOXYCYCLINE
     Indication: PRODUCT USED FOR UNKNOWN INDICATION
     Dosage: 100 MG, BID (1-0-1)
     Route: 065
     Dates: start: 201711, end: 201712
  4. ERDOMED [Suspect]
     Active Substance: ERDOSTEINE
     Indication: PRODUCT USED FOR UNKNOWN INDICATION
     Dosage: 300 MG, BID (1-0-1)
     Route: 065
     Dates: start: 20171129, end: 201712
  5. DESLORATADIN MYLAN [Suspect]
     Active Substance: DESLORATADINE
     Indication: HYPERSENSITIVITY
     Dosage: 5 MG, BID (1-0-1)
     Route: 065

REACTIONS (15)
  - Rash [None]
  - Oedema peripheral [None]
  - Erythema [None]
  - Eye oedema [Unknown]
  - Dry mouth [Unknown]
  - Oedema peripheral [Unknown]
  - Headache [Unknown]
  - Lip swelling [Unknown]
  - Breast pain [None]
  - Pruritus [None]
  - Ageusia [Unknown]
  - Breast oedema [None]
  - Pain in extremity [None]
  - Breast swelling [Unknown]
  - Rash [Unknown]
